FAERS Safety Report 21861140 (Version 1)
Quarter: 2023Q1

REPORT INFORMATION
  Report Type: Spontaneous
  Country: US (occurrence: US)
  Receive Date: 20230113
  Receipt Date: 20230113
  Transmission Date: 20230418
  Serious: No
  Sender: FDA-Public Use
  Company Number: US-ABBVIE-4238416

PATIENT
  Age: 46 Year
  Sex: Female

DRUGS (2)
  1. HUMIRA [Suspect]
     Active Substance: ADALIMUMAB
     Indication: Colitis ulcerative
     Route: 058
  2. HYDREA [Suspect]
     Active Substance: HYDROXYUREA
     Indication: Product used for unknown indication

REACTIONS (4)
  - Obesity [Unknown]
  - Thrombocytosis [Unknown]
  - Drug ineffective [Unknown]
  - Immunosuppression [Unknown]
